FAERS Safety Report 5388504-9 (Version None)
Quarter: 2007Q3

REPORT INFORMATION
  Report Type: 
  Country: None (occurrence: None)
  Receive Date: 20070716
  Receipt Date: 20070709
  Transmission Date: 20080115
  Serious: Yes (Life-Threatening, Hospitalization, Other)
  Sender: FDA-Public Use
  Company Number: HQWYE303522MAY07

PATIENT
  Sex: Male
  Weight: 53 kg

DRUGS (10)
  1. MYLOTARG [Suspect]
     Indication: ACUTE MYELOID LEUKAEMIA RECURRENT
     Route: 041
     Dates: start: 20070319, end: 20070319
  2. PREDNISOLONE [Concomitant]
     Route: 048
     Dates: start: 20070309, end: 20070324
  3. PARIET [Concomitant]
     Route: 048
     Dates: start: 20070307
  4. MAG-LAX [Concomitant]
     Route: 048
     Dates: start: 20070312
  5. ZEFFIX [Concomitant]
     Route: 048
     Dates: start: 20070307
  6. DIFLUCAN [Concomitant]
     Indication: PROPHYLAXIS
     Route: 048
     Dates: start: 20070308, end: 20070419
  7. CIPROFLOXACIN [Concomitant]
     Indication: PROPHYLAXIS
     Dosage: 1800 MG/DAY
     Route: 048
     Dates: start: 20070308, end: 20070325
  8. PURSENNID [Concomitant]
     Route: 048
     Dates: start: 20070308
  9. FRAGMIN [Concomitant]
     Dosage: 4 KIU/DAY
     Route: 041
     Dates: start: 20070307, end: 20070323
  10. BAKTAR [Concomitant]
     Indication: PROPHYLAXIS
     Route: 048
     Dates: start: 20070307

REACTIONS (9)
  - ANAEMIA [None]
  - BLOOD ALBUMIN DECREASED [None]
  - C-REACTIVE PROTEIN INCREASED [None]
  - FEBRILE NEUTROPENIA [None]
  - FIBRIN DEGRADATION PRODUCTS INCREASED [None]
  - NAUSEA [None]
  - NEUTROPHIL COUNT DECREASED [None]
  - PLATELET COUNT DECREASED [None]
  - WHITE BLOOD CELL COUNT DECREASED [None]
